FAERS Safety Report 5174377-6 (Version None)
Quarter: 2006Q4

REPORT INFORMATION
  Report Type: 
  Country: None (occurrence: None)
  Receive Date: 20061214
  Receipt Date: 20061204
  Transmission Date: 20070319
  Serious: Yes (Death, Other)
  Sender: FDA-Public Use
  Company Number: FR-ELI_LILLY_AND_COMPANY-FR200612001338

PATIENT
  Age: 68 Year
  Sex: Female

DRUGS (1)
  1. GEMCITABINE HCL [Suspect]
     Indication: OVARIAN CANCER

REACTIONS (3)
  - DISEASE PROGRESSION [None]
  - PULMONARY OEDEMA [None]
  - THROMBOTIC MICROANGIOPATHY [None]
